FAERS Safety Report 5276504-9 (Version None)
Quarter: 2007Q1

REPORT INFORMATION
  Report Type: 
  Country: None (occurrence: None)
  Receive Date: 20070327
  Receipt Date: 20070319
  Transmission Date: 20070707
  Serious: Yes (Death, Hospitalization)
  Sender: FDA-Public Use
  Company Number: DEWYE080319MAR07

PATIENT
  Sex: Female
  Weight: 60 kg

DRUGS (2)
  1. VENLAFAXINE HCL [Suspect]
     Indication: DEPRESSION
     Dosage: 150 MG PER DAY
     Dates: start: 20060101, end: 20060101
  2. VENLAFAXINE HCL [Suspect]
     Dosage: 150 MG IN THE MORNING, 75 MG AT NOON
     Dates: start: 20060101

REACTIONS (10)
  - ACUTE RESPIRATORY DISTRESS SYNDROME [None]
  - ALVEOLITIS [None]
  - CYANOSIS [None]
  - ILIAC ARTERY OCCLUSION [None]
  - MULTI-ORGAN FAILURE [None]
  - NECROSIS [None]
  - PNEUMONIA [None]
  - RENAL FAILURE [None]
  - STAPHYLOCOCCAL SEPSIS [None]
  - WHITE CLOT SYNDROME [None]
